FAERS Safety Report 9748609 (Version 1)
Quarter: 2013Q4

REPORT INFORMATION
  Report Type: Spontaneous
  Country: BR (occurrence: BR)
  Receive Date: 20131212
  Receipt Date: 20131212
  Transmission Date: 20140711
  Serious: Yes (Other)
  Sender: FDA-Public Use
  Company Number: PHHY2013BR142419

PATIENT
  Sex: Male
  Weight: 79 kg

DRUGS (3)
  1. ONBREZ [Suspect]
     Indication: INCREASED BRONCHIAL SECRETION
     Dosage: 1 DF, DAILY
  2. ONBREZ [Suspect]
     Indication: OFF LABEL USE
  3. OXIMAX [Suspect]
     Indication: INCREASED BRONCHIAL SECRETION
     Dosage: 1 DF, DAILY

REACTIONS (1)
  - Increased bronchial secretion [Recovered/Resolved]
